FAERS Safety Report 9631734 (Version 1)
Quarter: 2013Q4

REPORT INFORMATION
  Report Type: Spontaneous
  Country: ES (occurrence: ES)
  Receive Date: 20131018
  Receipt Date: 20131018
  Transmission Date: 20140711
  Serious: Yes (Death)
  Sender: FDA-Public Use
  Company Number: ES-CELGENEUS-144-50794-13101294

PATIENT
  Sex: 0

DRUGS (3)
  1. VIDAZA [Suspect]
     Indication: ACUTE MYELOID LEUKAEMIA
     Dosage: 75 MILLIGRAM/SQ. METER
     Route: 041
     Dates: start: 20100910, end: 20100917
  2. VIDAZA [Suspect]
     Dosage: 50 MILLIGRAM/SQ. METER
     Route: 041
     Dates: start: 201010
  3. VIDAZA [Suspect]
     Dosage: 50 MILLIGRAM/SQ. METER
     Route: 041
     Dates: start: 201011

REACTIONS (5)
  - Renal failure [Fatal]
  - Acute myeloid leukaemia [Fatal]
  - Dehydration [Unknown]
  - Hypercalcaemia [Unknown]
  - No therapeutic response [Unknown]
